FAERS Safety Report 7044560-3 (Version None)
Quarter: 2010Q4

REPORT INFORMATION
  Report Type: 
  Country: None (occurrence: None)
  Receive Date: 20101014
  Receipt Date: 20101007
  Transmission Date: 20110411
  Serious: Yes (Other)
  Sender: FDA-Public Use
  Company Number: FR-NOVOPROD-316275

PATIENT
  Age: 61 Year
  Sex: Female

DRUGS (8)
  1. VICTOZA [Suspect]
     Indication: TYPE 2 DIABETES MELLITUS
     Dosage: UNK
  2. KARDEGIC                           /00002703/ [Concomitant]
  3. OMEPRAZOLE [Concomitant]
  4. TAHOR [Concomitant]
  5. SINGULAIR [Concomitant]
  6. STAGID [Concomitant]
  7. OMEGA 3                            /00931501/ [Concomitant]
  8. SOLUPRED                           /00016201/ [Concomitant]

REACTIONS (2)
  - GAMMA-GLUTAMYLTRANSFERASE INCREASED [None]
  - TRANSAMINASES INCREASED [None]
